FAERS Safety Report 25650171 (Version 2)
Quarter: 2025Q4

REPORT INFORMATION
  Report Type: Spontaneous
  Country: US (occurrence: US)
  Receive Date: 20250806
  Receipt Date: 20251006
  Transmission Date: 20260118
  Serious: No
  Sender: LUPIN
  Company Number: US-LUPIN PHARMACEUTICALS INC.-2025-06809

PATIENT
  Age: 74 Year

DRUGS (1)
  1. ALBUTEROL SULFATE [Suspect]
     Active Substance: ALBUTEROL SULFATE
     Indication: Dyspnoea
     Dosage: QID, 2 PUFFS EVERY 6 HOURS (2 IN THE MORNING AND 2 AT NIGHT)

REACTIONS (6)
  - Oropharyngeal discomfort [Unknown]
  - Cough [Unknown]
  - Drug dose omission by device [Unknown]
  - Device malfunction [Unknown]
  - Device delivery system issue [Unknown]
  - Device deposit issue [Unknown]
